FAERS Safety Report 24634530 (Version 1)
Quarter: 2024Q4

REPORT INFORMATION
  Report Type: Spontaneous
  Country: US (occurrence: US)
  Receive Date: 20241119
  Receipt Date: 20241119
  Transmission Date: 20250114
  Serious: No
  Sender: ENDO
  Company Number: US-ENDO PHARMACEUTICALS INC-2024-001548

PATIENT

DRUGS (3)
  1. EPHEDRINE SULFATE [Suspect]
     Active Substance: EPHEDRINE SULFATE
     Indication: Procedural hypotension
     Dosage: UNK UNKNOWN, UNKNOWN  (VIAL 1)
     Route: 065
  2. EPHEDRINE SULFATE [Suspect]
     Active Substance: EPHEDRINE SULFATE
     Dosage: UNK UNKNOWN, UNKNOWN  (VIAL 2)
     Route: 065
  3. EPHEDRINE SULFATE [Suspect]
     Active Substance: EPHEDRINE SULFATE
     Dosage: UNK UNKNOWN, UNKNOWN  (VIAL 3, DIFFERENT LOT NUMBER)
     Route: 065

REACTIONS (1)
  - Drug ineffective [Recovered/Resolved]
